FAERS Safety Report 25730724 (Version 1)
Quarter: 2025Q3

REPORT INFORMATION
  Report Type: Spontaneous
  Country: US (occurrence: None)
  Receive Date: 20250827
  Receipt Date: 20250827
  Transmission Date: 20251021
  Serious: Yes (Death, Life-Threatening)
  Sender: FDA-CTU
  Company Number: None

PATIENT
  Age: 75 Year
  Sex: Male
  Weight: 49.9 kg

DRUGS (2)
  1. PEMBROLIZUMAB [Suspect]
     Active Substance: PEMBROLIZUMAB
     Indication: Squamous cell carcinoma of lung
     Route: 042
     Dates: start: 20240613, end: 20241213
  2. NIVOLUMAB [Suspect]
     Active Substance: NIVOLUMAB

REACTIONS (5)
  - Skin ulcer [None]
  - Dermatitis infected [None]
  - Fall [None]
  - Head injury [None]
  - Troponin increased [None]

NARRATIVE: CASE EVENT DATE: 20241212
